FAERS Safety Report 17601407 (Version 1)
Quarter: 2020Q1

REPORT INFORMATION
  Report Type: Spontaneous
  Country: US (occurrence: US)
  Receive Date: 20200331
  Receipt Date: 20200331
  Transmission Date: 20200409
  Serious: Yes (Other)
  Sender: FDA-Public Use
  Company Number: US-ALEMBIC PHARMACUETICALS LIMITED-2020SCAL000128

PATIENT

DRUGS (2)
  1. CARBIDOPA AND LEVODOPA [Suspect]
     Active Substance: CARBIDOPA\LEVODOPA
     Indication: PARKINSON^S DISEASE
     Dosage: 25 MG/ 100 MG, QID
  2. CITALOPRAM [Concomitant]
     Active Substance: CITALOPRAM HYDROBROMIDE
     Indication: DEPRESSIVE SYMPTOM
     Dosage: 20 MILLIGRAM, DAILY

REACTIONS (7)
  - Condition aggravated [Not Recovered/Not Resolved]
  - Personality change [Not Recovered/Not Resolved]
  - Behaviour disorder [Not Recovered/Not Resolved]
  - Intentional self-injury [Not Recovered/Not Resolved]
  - Drug ineffective [Unknown]
  - Hypersexuality [Not Recovered/Not Resolved]
  - Impulsive behaviour [Not Recovered/Not Resolved]
